FAERS Safety Report 22284434 (Version 7)
Quarter: 2023Q4

REPORT INFORMATION
  Report Type: Spontaneous
  Country: US (occurrence: US)
  Receive Date: 20230504
  Receipt Date: 20231102
  Transmission Date: 20240110
  Serious: Yes (Death, Hospitalization, Other)
  Sender: FDA-Public Use
  Company Number: US-PFIZER INC-PV202300078882

PATIENT
  Age: 46 Year
  Sex: Female
  Weight: 95.25 kg

DRUGS (2)
  1. LORBRENA [Suspect]
     Active Substance: LORLATINIB
     Indication: Lung cancer metastatic
     Dosage: 75 MG, 1X/DAY (TAKE 3 TABLETS AT ONE TIME, IN MORNING)
     Dates: start: 2021, end: 202304
  2. LORBRENA [Suspect]
     Active Substance: LORLATINIB
     Dosage: TAKE 3 TABLETS DAILY
     Route: 048

REACTIONS (5)
  - Death [Fatal]
  - Brain operation [Recovering/Resolving]
  - Brain injury [Unknown]
  - Seizure [Unknown]
  - Product dose omission in error [Unknown]

NARRATIVE: CASE EVENT DATE: 20230413
